FAERS Safety Report 12809850 (Version 1)
Quarter: 2016Q4

REPORT INFORMATION
  Report Type: Report from Study
  Country: KR (occurrence: KR)
  Receive Date: 20161005
  Receipt Date: 20161005
  Transmission Date: 20170207
  Serious: Yes (Other)
  Sender: FDA-Public Use
  Company Number: KR-CIPLA LTD.-2016KR19075

PATIENT

DRUGS (4)
  1. FLUOROURACIL. [Suspect]
     Active Substance: FLUOROURACIL
     Indication: ADENOCARCINOMA GASTRIC
     Dosage: 2000 MG/M2, ON DAY 1 AS 48 HR CONTINUOUS INFUSION
  2. OXALIPLATIN. [Suspect]
     Active Substance: OXALIPLATIN
     Indication: ADENOCARCINOMA GASTRIC
     Dosage: 85 MG/M2, ON DAY 1, DILUTED IN 500 ML 5% DEXTROSE AS A 2 HR IV INFUSION
     Route: 042
  3. IRINOTECAN [Suspect]
     Active Substance: IRINOTECAN
     Indication: ADENOCARCINOMA GASTRIC
     Dosage: 150 MG/M2, ON DAY 1, DILUTED IN 500 ML 5% DEXTROSE AS A 90-MIN INFUSION
  4. LEUCOVORIN. [Suspect]
     Active Substance: LEUCOVORIN
     Indication: ADENOCARCINOMA GASTRIC
     Dosage: 100 MG/M2, ON DAY 1, 2-H INFUSION

REACTIONS (1)
  - Tumour haemorrhage [Unknown]
